FAERS Safety Report 13244386 (Version 1)
Quarter: 2017Q1

REPORT INFORMATION
  Report Type: Spontaneous
  Country: US (occurrence: US)
  Receive Date: 20170216
  Receipt Date: 20170216
  Transmission Date: 20170428
  Serious: No
  Sender: FDA-Public Use
  Company Number: US-RELYPSA-RLY2017000408

PATIENT
  Sex: Male

DRUGS (13)
  1. VELTASSA [Suspect]
     Active Substance: PATIROMER
     Indication: HYPERKALAEMIA
     Dosage: 16.8 G, QD
     Route: 048
     Dates: start: 20161122
  2. ASPIRIN 81 [Concomitant]
     Active Substance: ASPIRIN
  3. PRILOSEC [Concomitant]
     Active Substance: OMEPRAZOLE MAGNESIUM
  4. PRESERVISION AREDS [Concomitant]
     Active Substance: MINERALS\VITAMINS
  5. AMLODIPINE BESYLATE. [Concomitant]
     Active Substance: AMLODIPINE BESYLATE
  6. ERGOCALCIFEROL. [Concomitant]
     Active Substance: ERGOCALCIFEROL
  7. METOPROLOL TARTRATE. [Concomitant]
     Active Substance: METOPROLOL TARTRATE
  8. GLYBURIDE. [Concomitant]
     Active Substance: GLYBURIDE
  9. SODIUM BICARBONATE. [Concomitant]
     Active Substance: SODIUM BICARBONATE
  10. PLAVIX [Concomitant]
     Active Substance: CLOPIDOGREL BISULFATE
  11. VESICARE [Concomitant]
     Active Substance: SOLIFENACIN SUCCINATE
  12. CALCITRIOL. [Concomitant]
     Active Substance: CALCITRIOL
  13. LYRICA [Concomitant]
     Active Substance: PREGABALIN

REACTIONS (1)
  - Constipation [Unknown]
